FAERS Safety Report 8452287-6 (Version None)
Quarter: 2012Q2

REPORT INFORMATION
  Report Type: 
  Country: None (occurrence: None)
  Receive Date: 20120620
  Receipt Date: 20120612
  Transmission Date: 20120825
  Serious: Yes (Hospitalization)
  Sender: FDA-Public Use
  Company Number: CA-ELI_LILLY_AND_COMPANY-CA201202008558

PATIENT
  Age: 47 Year
  Sex: Male

DRUGS (18)
  1. VITAMIN D [Concomitant]
  2. LOVENOX [Concomitant]
  3. PREDNISONE TAB [Concomitant]
  4. METFORMIN HCL [Concomitant]
  5. FORTEO [Suspect]
     Indication: OSTEOPOROSIS
     Dosage: 20 UG, QD
     Route: 058
     Dates: start: 20111220
  6. CITALOPRAM [Concomitant]
  7. TEMAZEPAM [Concomitant]
  8. INDOCENT [Concomitant]
  9. ZOPICLONE [Concomitant]
  10. AMITRIPTYLINE HCL [Concomitant]
  11. DENORAL [Concomitant]
  12. DILAUDID [Concomitant]
  13. CORTISONE ACETATE [Concomitant]
  14. CALCIUM [Concomitant]
  15. IRON [Concomitant]
  16. ESOMEPRAZOLE [Concomitant]
  17. DAPSONE [Concomitant]
  18. INNOHEP [Concomitant]

REACTIONS (2)
  - CHEST PAIN [None]
  - PNEUMONIA [None]
